FAERS Safety Report 6307517-3 (Version None)
Quarter: 2009Q3

REPORT INFORMATION
  Report Type: 
  Country: None (occurrence: None)
  Receive Date: 20090813
  Receipt Date: 20090811
  Transmission Date: 20100115
  Serious: Yes (Other)
  Sender: FDA-Public Use
  Company Number: US-TEVA-199304USA

PATIENT
  Sex: Female

DRUGS (4)
  1. FEXOFENADINE TABLET 30MG, 60MG AND 180MG [Suspect]
     Indication: SEASONAL ALLERGY
     Dates: start: 20090401, end: 20090426
  2. CHLORPHENIRAMINE MALEATE [Suspect]
  3. ATENOLOL [Concomitant]
     Indication: HYPERTENSION
  4. LISINOPRIL [Concomitant]
     Indication: HYPERTENSION

REACTIONS (4)
  - BLOOD PRESSURE DECREASED [None]
  - LOSS OF CONSCIOUSNESS [None]
  - PULSE ABSENT [None]
  - SYNCOPE [None]
